FAERS Safety Report 12267307 (Version 1)
Quarter: 2016Q2

REPORT INFORMATION
  Report Type: Spontaneous
  Country: US (occurrence: US)
  Receive Date: 20160414
  Receipt Date: 20160414
  Transmission Date: 20160815
  Serious: No
  Sender: FDA-Public Use
  Company Number: US-THROMBOGENICS INC-SPO-2015-2066

PATIENT
  Age: 64 Year
  Sex: Female

DRUGS (1)
  1. JETREA [Suspect]
     Active Substance: OCRIPLASMIN
     Indication: PRODUCT USED FOR UNKNOWN INDICATION
     Dosage: 0.125 MG, ONE TIME DOSE
     Route: 031
     Dates: start: 20151102, end: 20151102

REACTIONS (6)
  - Photopsia [Recovered/Resolved]
  - Vision blurred [Recovering/Resolving]
  - Subretinal fluid [Recovered/Resolved]
  - Metamorphopsia [Not Recovered/Not Resolved]
  - Vitreous floaters [Recovered/Resolved]
  - Halo vision [Recovered/Resolved]

NARRATIVE: CASE EVENT DATE: 20151102
